FAERS Safety Report 17057730 (Version 2)
Quarter: 2019Q4

REPORT INFORMATION
  Report Type: Spontaneous
  Country: US (occurrence: US)
  Receive Date: 20191121
  Receipt Date: 20191126
  Transmission Date: 20200122
  Serious: No
  Sender: FDA-Public Use
  Company Number: US-JNJFOC-20191125458

PATIENT
  Age: 79 Year
  Sex: Female
  Weight: 55.39 kg

DRUGS (2)
  1. XARELTO [Suspect]
     Active Substance: RIVAROXABAN
     Indication: CEREBROVASCULAR ACCIDENT PROPHYLAXIS
  2. XARELTO [Suspect]
     Active Substance: RIVAROXABAN
     Indication: ATRIAL FIBRILLATION
     Dosage: ONGOING
     Route: 048
     Dates: start: 201801

REACTIONS (2)
  - Extra dose administered [Unknown]
  - Product label issue [Unknown]

NARRATIVE: CASE EVENT DATE: 20191114
